FAERS Safety Report 15116461 (Version 1)
Quarter: 2018Q3

REPORT INFORMATION
  Report Type: Spontaneous
  Country: NL (occurrence: NL)
  Receive Date: 20180706
  Receipt Date: 20180706
  Transmission Date: 20181010
  Serious: Yes (Death, Hospitalization, Other)
  Sender: FDA-Public Use
  Company Number: NL-TEVA-2018-NL-922569

PATIENT
  Age: 63 Year
  Sex: Male

DRUGS (8)
  1. ENALAPRIL 10MG [Concomitant]
     Active Substance: ENALAPRIL
  2. DEXAMETHASON 4MG [Concomitant]
  3. OXALIPLATINE INFUUS INFUUS, 1 MG/MG (MILLIGRAM PER MILLIGRAM) [Suspect]
     Active Substance: OXALIPLATIN
     Indication: COLON CANCER
     Dosage: NIET MEER TE ACHTERHALEN
     Route: 065
     Dates: start: 2017, end: 2017
  4. FOLINE ZUUR [Concomitant]
  5. ACENOCOUMAROL 1 MG [Concomitant]
  6. ALLOPURINOL 100 MG [Concomitant]
     Active Substance: ALLOPURINOL
  7. 5 FU [Concomitant]
     Active Substance: FLUOROURACIL
  8. PANTOZOL 40 MG [Concomitant]

REACTIONS (3)
  - Pneumocystis jirovecii pneumonia [Fatal]
  - Pulmonary embolism [Unknown]
  - Neuropathy peripheral [Unknown]

NARRATIVE: CASE EVENT DATE: 2017
